FAERS Safety Report 17796705 (Version 2)
Quarter: 2020Q4

REPORT INFORMATION
  Report Type: Spontaneous
  Country: FR (occurrence: FR)
  Receive Date: 20200518
  Receipt Date: 20201006
  Transmission Date: 20210113
  Serious: Yes (Hospitalization, Other)
  Sender: FDA-Public Use
  Company Number: FR-PFIZER INC-2020190615

PATIENT
  Age: 73 Year
  Sex: Male
  Weight: 71 kg

DRUGS (15)
  1. SPECIAFOLDINE [Concomitant]
     Active Substance: FOLIC ACID
     Indication: FOLATE DEFICIENCY
     Dosage: 5 MG
     Route: 048
     Dates: start: 20190802
  2. CYTARABINE. [Suspect]
     Active Substance: CYTARABINE
     Indication: B-CELL LYMPHOMA
     Dosage: 7600 MG, CYCLIC (3800 MG, 2 DOSE DAILY PER 21-DAY CYCLE)
     Route: 042
     Dates: start: 20190802, end: 20190918
  3. AVODART [Concomitant]
     Active Substance: DUTASTERIDE
     Indication: BENIGN PROSTATIC HYPERPLASIA
     Dosage: 5 MG
     Route: 048
  4. DEXAMETHASONE. [Suspect]
     Active Substance: DEXAMETHASONE
     Indication: B-CELL LYMPHOMA
     Dosage: 160 MG, CYCLIC (40 MG, 4 DOSE DAILY PER 21-DAY CYCLE)
     Route: 048
     Dates: start: 20190802, end: 20190920
  5. CISPLATIN. [Suspect]
     Active Substance: CISPLATIN
     Indication: B-CELL LYMPHOMA
     Dosage: 190 MG, EVERY 3 WEEKS (1 DOSE 3 WEEKS)
     Route: 042
     Dates: start: 20190802, end: 20190917
  6. LANSOPRAZOLE. [Concomitant]
     Active Substance: LANSOPRAZOLE
     Indication: GASTROOESOPHAGEAL REFLUX DISEASE
     Dosage: 30 MG
     Route: 048
     Dates: start: 20190928
  7. RITUXIMAB. [Suspect]
     Active Substance: RITUXIMAB
     Indication: B-CELL LYMPHOMA
     Dosage: 740 MG, EVERY 3 WEEKS (1 DOSE 3 WEEKS)
     Route: 042
     Dates: start: 20190802, end: 20190917
  8. ETOPOSIDE. [Suspect]
     Active Substance: ETOPOSIDE
     Indication: B-CELL LYMPHOMA
     Dosage: 380 MG, 1X/DAY (190 MG, 2 DOSE DAILY)
     Dates: start: 20191010, end: 20191014
  9. MELPHALAN. [Suspect]
     Active Substance: MELPHALAN
     Indication: B-CELL LYMPHOMA
     Dosage: 270 MG, SINGLE (ONCE A DAY AS SINGLE DOSE)
     Route: 042
     Dates: start: 20191014, end: 20191014
  10. ZARZIO [Concomitant]
     Active Substance: FILGRASTIM
     Indication: NEUTROPENIA
     Dosage: 480 MG
     Route: 058
     Dates: start: 20200311, end: 20200412
  11. ZELITREX [Concomitant]
     Active Substance: VALACYCLOVIR HYDROCHLORIDE
     Indication: INFECTION PROPHYLAXIS
     Dosage: 1000 MG
     Route: 048
     Dates: start: 20190801
  12. CYTARABINE. [Suspect]
     Active Substance: CYTARABINE
     Dosage: 390 MG, 2X/DAY
     Route: 042
     Dates: start: 20191010, end: 20191014
  13. CARMUSTINE. [Suspect]
     Active Substance: CARMUSTINE
     Indication: B-CELL LYMPHOMA
     Dosage: 580 MG, SINGLE (ONCE A DAY AS SINGLE DOSE)
     Route: 042
     Dates: start: 20191010, end: 20191010
  14. BACTRIM [Concomitant]
     Active Substance: SULFAMETHOXAZOLE\TRIMETHOPRIM
     Indication: INFECTION PROPHYLAXIS
     Dosage: 1 DF
     Route: 048
     Dates: start: 202001
  15. BISOPROLOL [Concomitant]
     Active Substance: BISOPROLOL
     Indication: HYPERTENSION
     Dosage: 10 MG
     Route: 048

REACTIONS (3)
  - Bronchopulmonary aspergillosis [Recovered/Resolved]
  - Off label use [Unknown]
  - Product use in unapproved indication [Unknown]

NARRATIVE: CASE EVENT DATE: 20190802
